FAERS Safety Report 5060449-3 (Version None)
Quarter: 2006Q3

REPORT INFORMATION
  Report Type: 
  Country: None (occurrence: None)
  Receive Date: 20060721
  Receipt Date: 20060721
  Transmission Date: 20061208
  Serious: Yes (Hospitalization)
  Sender: FDA-Public Use
  Company Number: None

PATIENT
  Age: 76 Year
  Sex: Female
  Weight: 73.4827 kg

DRUGS (2)
  1. BORTEZOMIB [Suspect]
     Indication: MULTIPLE MYELOMA
     Dosage: IV BOLUS
     Route: 040
     Dates: start: 20060428, end: 20060428
  2. MELPHALEN [Suspect]
     Dosage: IV BOLUS
     Route: 040
     Dates: start: 20060428, end: 20060428

REACTIONS (1)
  - PAIN IN EXTREMITY [None]
